FAERS Safety Report 6663779-4 (Version None)
Quarter: 2010Q2

REPORT INFORMATION
  Report Type: 
  Country: None (occurrence: None)
  Receive Date: 20100401
  Receipt Date: 20100324
  Transmission Date: 20101027
  Serious: Yes (Other)
  Sender: FDA-Public Use
  Company Number: US-JNJFOC-20100307167

PATIENT
  Sex: Female
  Weight: 74.39 kg

DRUGS (5)
  1. REMICADE [Suspect]
     Indication: COLITIS ULCERATIVE
     Route: 042
  2. COLAZAL [Concomitant]
     Indication: COLITIS ULCERATIVE
  3. HYOSCYAMINE [Concomitant]
     Indication: MUSCLE SPASMS
  4. ROWASA [Concomitant]
     Indication: COLITIS ULCERATIVE
  5. ZOLOFT [Concomitant]
     Indication: NERVOUSNESS

REACTIONS (4)
  - COUGH [None]
  - DYSPNOEA [None]
  - OEDEMA MOUTH [None]
  - PYREXIA [None]
